FAERS Safety Report 6899244-9 (Version None)
Quarter: 2010Q3

REPORT INFORMATION
  Report Type: 
  Country: None (occurrence: None)
  Receive Date: 20100802
  Receipt Date: 20080312
  Transmission Date: 20110219
  Serious: Yes (Other)
  Sender: FDA-Public Use
  Company Number: US-PFIZER INC-2007054277

PATIENT
  Sex: Male
  Weight: 70.3 kg

DRUGS (15)
  1. LYRICA [Suspect]
     Indication: DIABETIC NEUROPATHY
     Route: 048
     Dates: start: 20060816, end: 20070101
  2. LYRICA [Suspect]
     Indication: PAIN
  3. METFORMIN/PIOGLITAZONE [Concomitant]
     Indication: DIABETES MELLITUS
  4. STARLIX [Concomitant]
     Indication: DIABETES MELLITUS
  5. VYTORIN [Concomitant]
     Indication: BLOOD CHOLESTEROL
  6. GLIMEPIRIDE [Concomitant]
     Indication: DIABETES MELLITUS
  7. OPHTHALMOLOGICALS [Concomitant]
     Indication: EYE DISORDER
  8. ACCUPRIL [Concomitant]
  9. ACETYLSALICYLIC ACID SRT [Concomitant]
  10. VITAMIN B1 TAB [Concomitant]
  11. COVERA-HS [Concomitant]
  12. LEVITRA [Concomitant]
  13. COREG [Concomitant]
  14. OSCAL [Concomitant]
  15. ACTOS [Concomitant]

REACTIONS (8)
  - ANAEMIA [None]
  - BALANCE DISORDER [None]
  - DIARRHOEA [None]
  - DIZZINESS [None]
  - FEELING DRUNK [None]
  - GAIT DISTURBANCE [None]
  - GASTRITIS [None]
  - GLYCOSYLATED HAEMOGLOBIN INCREASED [None]
